FAERS Safety Report 5385859-6 (Version None)
Quarter: 2007Q3

REPORT INFORMATION
  Report Type: 
  Country: None (occurrence: None)
  Receive Date: 20070703
  Receipt Date: 20070423
  Transmission Date: 20080115
  Serious: No
  Sender: FDA-Public Use
  Company Number: 2007PV032845

PATIENT
  Age: 27 Year
  Sex: Female
  Weight: 68.4932 kg

DRUGS (4)
  1. SYMLIN [Suspect]
     Indication: TYPE 1 DIABETES MELLITUS
     Dosage: 42 MCG;TID;SC
     Route: 058
     Dates: start: 20070401
  2. LANTUS [Concomitant]
  3. NOVOLOG [Concomitant]
  4. INSULIN [Concomitant]

REACTIONS (1)
  - INJECTION SITE PAIN [None]
